FAERS Safety Report 14830558 (Version 1)
Quarter: 2018Q2

REPORT INFORMATION
  Report Type: Spontaneous
  Country: US (occurrence: US)
  Receive Date: 20180430
  Receipt Date: 20180430
  Transmission Date: 20180711
  Serious: No
  Sender: FDA-Public Use
  Company Number: US-SA-2018SA049502

PATIENT
  Sex: Female
  Weight: 69.4 kg

DRUGS (8)
  1. ALIROCUMAB PREFILLED PEN [Suspect]
     Active Substance: ALIROCUMAB
     Indication: CROHN^S DISEASE
  2. PRALUENT [Suspect]
     Active Substance: ALIROCUMAB
     Indication: COLITIS ULCERATIVE
     Route: 058
     Dates: start: 20161005
  3. ALIROCUMAB PREFILLED PEN [Suspect]
     Active Substance: ALIROCUMAB
     Indication: COLITIS ULCERATIVE
  4. PRALUENT [Suspect]
     Active Substance: ALIROCUMAB
     Indication: CROHN^S DISEASE
     Route: 058
     Dates: start: 20161005
  5. PRALUENT [Suspect]
     Active Substance: ALIROCUMAB
     Indication: CROHN^S DISEASE
     Route: 058
  6. ALIROCUMAB PREFILLED PEN [Suspect]
     Active Substance: ALIROCUMAB
     Indication: CROHN^S DISEASE
  7. PRALUENT [Suspect]
     Active Substance: ALIROCUMAB
     Indication: COLITIS ULCERATIVE
     Route: 058
  8. ALIROCUMAB PREFILLED PEN [Suspect]
     Active Substance: ALIROCUMAB
     Indication: COLITIS ULCERATIVE

REACTIONS (1)
  - Laboratory test abnormal [Unknown]
